FAERS Safety Report 8612812-9 (Version None)
Quarter: 2012Q3

REPORT INFORMATION
  Report Type: 
  Country: None (occurrence: None)
  Receive Date: 20120822
  Receipt Date: 20110916
  Transmission Date: 20120928
  Serious: No
  Sender: FDA-Public Use
  Company Number: US-ASTRAZENECA-2010SE41988

PATIENT
  Age: 74 Year
  Sex: Female
  Weight: 99.8 kg

DRUGS (6)
  1. SYMBICORT [Suspect]
     Dosage: 80/4.5, 2 PUFFS TWO TIMES IN A DAY
     Route: 055
     Dates: start: 20100801
  2. ALDACTICIDE [Concomitant]
  3. ATENOLOL [Concomitant]
  4. NEXIUM [Suspect]
     Route: 048
  5. COUMADIN [Concomitant]
  6. SIMVASTATIN [Concomitant]

REACTIONS (4)
  - OROPHARYNGEAL PAIN [None]
  - DYSPHONIA [None]
  - THROAT IRRITATION [None]
  - SPEECH DISORDER [None]
